FAERS Safety Report 18326626 (Version 1)
Quarter: 2020Q3

REPORT INFORMATION
  Report Type: Report from Study
  Country: None (occurrence: CA)
  Receive Date: 20200930
  Receipt Date: 20200930
  Transmission Date: 20201103
  Serious: Yes (Other)
  Sender: FDA-Public Use
  Company Number: CA-ABBVIE-20K-028-3585223-00

PATIENT
  Sex: Male

DRUGS (1)
  1. LUPRON DEPOT [Suspect]
     Active Substance: LEUPROLIDE ACETATE
     Indication: PROSTATE CANCER
     Route: 030

REACTIONS (5)
  - Urinary incontinence [Not Recovered/Not Resolved]
  - Surgery [Unknown]
  - Procedural pain [Unknown]
  - Fall [Not Recovered/Not Resolved]
  - Hot flush [Unknown]
